FAERS Safety Report 8064876 (Version 2)
Quarter: 2013Q2

REPORT INFORMATION
  Report Type: Spontaneous
  Country: US (occurrence: None)
  Receive Date: 20110720
  Receipt Date: 20130625
  Transmission Date: 20140414
  Serious: Yes (Hospitalization)
  Sender: FDA-Public Use
  Company Number: AEUSA201100177

PATIENT
  Age: 1 Day
  Sex: Male
  Weight: 2.72 kg

DRUGS (4)
  1. HYPERRHO S/D FULL DOSE [Suspect]
     Indication: PROPHYLAXIS AGAINST RH ISOIMMUNISATION
     Dosage: 1500 IU;1X;IM
     Route: 030
     Dates: start: 20110318, end: 20110318
  2. NIFEDIPINE [Concomitant]
  3. BETAMETHASONE [Concomitant]
  4. INSULIN [Concomitant]

REACTIONS (4)
  - PREMATURE BABY [None]
  - Maternal drugs affecting foetus [None]
  - RHESUS INCOMPATIBILITY [None]
  - RHESUS HAEMOLYTIC DISEASE OF NEWBORN [None]
